FAERS Safety Report 6380453-2 (Version None)
Quarter: 2009Q3

REPORT INFORMATION
  Report Type: 
  Country: None (occurrence: None)
  Receive Date: 20090929
  Receipt Date: 20090916
  Transmission Date: 20100115
  Serious: No
  Sender: FDA-Public Use
  Company Number: US-BAYER-200933879NA

PATIENT
  Age: 40 Year
  Sex: Female

DRUGS (3)
  1. MAGNEVIST [Suspect]
     Indication: NUCLEAR MAGNETIC RESONANCE IMAGING
     Dosage: TOTAL DAILY DOSE: 17 ML  UNIT DOSE: 20 ML
     Route: 042
     Dates: start: 20090916, end: 20090916
  2. LORTAB [Concomitant]
  3. LYRICA [Concomitant]

REACTIONS (2)
  - FLUSHING [None]
  - URTICARIA [None]
